FAERS Safety Report 17731590 (Version 1)
Quarter: 2020Q2

REPORT INFORMATION
  Report Type: Spontaneous
  Country: GB (occurrence: GB)
  Receive Date: 20200430
  Receipt Date: 20200430
  Transmission Date: 20200714
  Serious: Yes (Hospitalization)
  Sender: FDA-Public Use
  Company Number: GB-MARKSANS PHARMA LIMITED-2083406

PATIENT
  Sex: Female

DRUGS (1)
  1. FLUOXETINE MOLECULE FROM UK MARKET [Suspect]
     Active Substance: FLUOXETINE HYDROCHLORIDE
     Route: 048

REACTIONS (3)
  - Rash [None]
  - Swelling face [None]
  - Hypersensitivity [None]
